FAERS Safety Report 9611478 (Version 4)
Quarter: 2013Q4

REPORT INFORMATION
  Report Type: Report from Study
  Country: UA (occurrence: UA)
  Receive Date: 20131010
  Receipt Date: 20131129
  Transmission Date: 20140711
  Serious: Yes (Other)
  Sender: FDA-Public Use
  Company Number: UA-ASTRAZENECA-2013SE73811

PATIENT
  Age: 24532 Day
  Sex: Female

DRUGS (20)
  1. AZD6140 [Suspect]
     Indication: CORONARY ARTERY DISEASE
     Route: 048
     Dates: start: 20120924, end: 20130923
  2. AZD6140 [Suspect]
     Indication: CORONARY ARTERY DISEASE
     Route: 048
     Dates: start: 20130721
  3. STUDY PROCEDURE [Suspect]
     Indication: CORONARY ARTERY DISEASE
     Route: 065
  4. ISOSORBIDE DINITRATE [Concomitant]
     Indication: MYOCARDIAL ISCHAEMIA
     Route: 048
  5. METFORMIN [Concomitant]
     Indication: TYPE 2 DIABETES MELLITUS
     Route: 048
     Dates: start: 20130603
  6. LACTULOSE [Concomitant]
     Indication: CONSTIPATION
     Route: 048
     Dates: start: 20130120
  7. VALSARTAN [Concomitant]
     Indication: MYOCARDIAL ISCHAEMIA
     Route: 048
  8. VALSARTAN [Concomitant]
     Indication: CARDIAC FAILURE
     Route: 048
  9. VALSARTAN [Concomitant]
     Indication: HYPERTENSION
     Route: 048
  10. METOPROLOL [Concomitant]
     Indication: MYOCARDIAL ISCHAEMIA
     Route: 048
  11. METOPROLOL [Concomitant]
     Indication: CARDIAC FAILURE
     Route: 048
  12. METOPROLOL [Concomitant]
     Indication: HYPERTENSION
     Route: 048
  13. AMLODIPINE [Concomitant]
     Indication: MYOCARDIAL ISCHAEMIA
     Route: 048
  14. AMLODIPINE [Concomitant]
     Indication: HYPERTENSION
     Route: 048
  15. INSULINUM HUMANUM [Concomitant]
     Indication: TYPE 2 DIABETES MELLITUS
     Route: 058
  16. ATORVASTATINUM [Concomitant]
     Indication: MYOCARDIAL ISCHAEMIA
     Route: 048
     Dates: start: 20130520
  17. ASA [Concomitant]
     Route: 048
  18. INDAPAMIDUM [Concomitant]
     Indication: HYPERTENSION
     Route: 048
  19. RABEPRAZOLE [Concomitant]
     Indication: GASTRITIS PROPHYLAXIS
     Route: 048
     Dates: start: 20121201, end: 20121215
  20. RABEPRAZOLE [Concomitant]
     Indication: GASTRITIS PROPHYLAXIS
     Route: 048
     Dates: start: 20130901, end: 20131015

REACTIONS (1)
  - Diabetic retinopathy [Not Recovered/Not Resolved]
